FAERS Safety Report 17713745 (Version 1)
Quarter: 2020Q2

REPORT INFORMATION
  Report Type: Spontaneous
  Country: US (occurrence: US)
  Receive Date: 20200427
  Receipt Date: 20200427
  Transmission Date: 20200714
  Serious: No
  Sender: FDA-Public Use
  Company Number: US-009507513-2004USA005040

PATIENT
  Age: 67 Year
  Sex: Female

DRUGS (5)
  1. ASMANEX [Suspect]
     Active Substance: MOMETASONE FUROATE
     Dosage: 60 METERED DOSES, 2 PUFFS DAILY BUT MAY USE UP TO 2 PUFFS TWICE DAILY
  2. ASMANEX [Suspect]
     Active Substance: MOMETASONE FUROATE
     Indication: ASTHMA
     Dosage: 60 METERED DOSES, 2 PUFFS DAILY BUT MAY USE UP TO 2 PUFFS TWICE DAILY
  3. VENTOLIN [Concomitant]
     Active Substance: ALBUTEROL SULFATE
     Dosage: UNK
  4. ASMANEX [Suspect]
     Active Substance: MOMETASONE FUROATE
     Indication: ASTHMA
     Dosage: 60 METERED DOSES, 2 PUFFS DAILY BUT MAY USE UP TO 2 PUFFS TWICE DAILY
  5. PROVENTIL [Suspect]
     Active Substance: ALBUTEROL
     Dosage: UNK

REACTIONS (12)
  - Stress [Not Recovered/Not Resolved]
  - Product use issue [Unknown]
  - Panic reaction [Unknown]
  - Product quality issue [Unknown]
  - Product quality issue [Unknown]
  - Product use in unapproved indication [Unknown]
  - Nervousness [Not Recovered/Not Resolved]
  - Mood altered [Unknown]
  - Poor quality device used [Unknown]
  - Anxiety [Not Recovered/Not Resolved]
  - Product dose omission [Unknown]
  - Poor quality device used [Unknown]

NARRATIVE: CASE EVENT DATE: 20200414
